FAERS Safety Report 4291961-2 (Version None)
Quarter: 2004Q1

REPORT INFORMATION
  Report Type: 
  Country: None (occurrence: None)
  Receive Date: 20040126
  Receipt Date: 20030909
  Transmission Date: 20041129
  Serious: No
  Sender: FDA-Public Use
  Company Number: USA030946682

PATIENT
  Age: 37 Year
  Sex: Female

DRUGS (9)
  1. FORTEO [Suspect]
     Dates: start: 20030801
  2. PROZAC [Concomitant]
  3. MOTRIN [Concomitant]
  4. PLAQUENIL [Concomitant]
  5. PRILOSEC [Concomitant]
  6. CALCIUM [Concomitant]
  7. MULTIVIT [Concomitant]
  8. SYNTHROID [Concomitant]
  9. PREDNISONE [Concomitant]

REACTIONS (1)
  - WEIGHT INCREASED [None]
